FAERS Safety Report 13240066 (Version 1)
Quarter: 2017Q1

REPORT INFORMATION
  Report Type: Spontaneous
  Country: US (occurrence: US)
  Receive Date: 20170216
  Receipt Date: 20170216
  Transmission Date: 20170428
  Serious: No
  Sender: FDA-Public Use
  Company Number: US-GLAXOSMITHKLINE-US2017021381

PATIENT
  Age: 64 Year
  Sex: Female

DRUGS (1)
  1. EQUATE NICOTINE [Suspect]
     Active Substance: NICOTINE
     Indication: SMOKING CESSATION THERAPY
     Dosage: 14 MG, UNK
     Route: 062
     Dates: start: 20170130, end: 20170210

REACTIONS (3)
  - Neck pain [Not Recovered/Not Resolved]
  - Musculoskeletal pain [Not Recovered/Not Resolved]
  - Back pain [Not Recovered/Not Resolved]

NARRATIVE: CASE EVENT DATE: 20170213
